FAERS Safety Report 18018846 (Version 3)
Quarter: 2021Q4

REPORT INFORMATION
  Report Type: Spontaneous
  Country: US (occurrence: US)
  Receive Date: 20200714
  Receipt Date: 20211126
  Transmission Date: 20220303
  Serious: Yes (Other)
  Sender: FDA-Public Use
  Company Number: US-GLAXOSMITHKLINE-US2020129416

PATIENT
  Sex: Male

DRUGS (23)
  1. ZANTAC [Suspect]
     Active Substance: RANITIDINE HYDROCHLORIDE
     Indication: Product used for unknown indication
     Dosage: UNK
     Route: 065
  2. ZANTAC [Suspect]
     Active Substance: RANITIDINE HYDROCHLORIDE
     Indication: Dyspepsia
     Dosage: 150 MG, QD, HE TOOK IT AS NEEDED, WHICH WAS PRETTY MUCH EVERYDAY
     Route: 065
     Dates: start: 201602, end: 201706
  3. ZANTAC [Suspect]
     Active Substance: RANITIDINE HYDROCHLORIDE
     Indication: Helicobacter infection
     Dosage: 150 MG, QD
     Route: 065
     Dates: start: 201201, end: 201712
  4. ZANTAC [Suspect]
     Active Substance: RANITIDINE HYDROCHLORIDE
     Indication: Dyspepsia
     Dosage: 150 MG, TWICE A DAY
     Route: 065
     Dates: start: 201201, end: 201712
  5. ZANTAC [Suspect]
     Active Substance: RANITIDINE HYDROCHLORIDE
     Indication: Dyspepsia
     Dosage: 150 MG, QD, HE TOOK IT AS NEEDED, WHICH WAS PRETTY MUCH EVERYDAY
     Route: 065
     Dates: start: 201602, end: 201706
  6. ZANTAC [Suspect]
     Active Substance: RANITIDINE HYDROCHLORIDE
     Indication: Dyspepsia
     Dosage: 150 MG, QD
     Route: 065
     Dates: start: 201201, end: 201712
  7. ZANTAC [Suspect]
     Active Substance: RANITIDINE HYDROCHLORIDE
     Dosage: 150 MG, TWICE A DAY
     Route: 065
     Dates: start: 201201, end: 201712
  8. RANITIDINE [Suspect]
     Active Substance: RANITIDINE
     Indication: Dyspepsia
     Dosage: 150 MG, QD
     Route: 065
     Dates: start: 201602, end: 201706
  9. RANITIDINE [Suspect]
     Active Substance: RANITIDINE
     Indication: Helicobacter infection
     Dosage: 150 MG, QD
     Route: 065
     Dates: start: 201201, end: 201712
  10. RANITIDINE [Suspect]
     Active Substance: RANITIDINE
     Indication: Dyspepsia
     Dosage: 150 MG, TWICE A DAY
     Route: 065
     Dates: start: 201201, end: 201712
  11. RANITIDINE [Suspect]
     Active Substance: RANITIDINE
     Indication: Dyspepsia
     Dosage: 150 MG, QD
     Route: 065
     Dates: start: 201602, end: 201706
  12. RANITIDINE [Suspect]
     Active Substance: RANITIDINE
     Indication: Helicobacter infection
     Dosage: 150 MG, QD
     Route: 065
     Dates: start: 201201, end: 201712
  13. RANITIDINE [Suspect]
     Active Substance: RANITIDINE
     Indication: Dyspepsia
     Dosage: 150 MG, TWICE A DAY
     Route: 065
     Dates: start: 201201, end: 201712
  14. ZANTAC [Suspect]
     Active Substance: RANITIDINE HYDROCHLORIDE
     Indication: Product used for unknown indication
     Dosage: UNK
     Route: 065
  15. ZANTAC [Suspect]
     Active Substance: RANITIDINE HYDROCHLORIDE
     Indication: Dyspepsia
     Dosage: 150 MG, QD, HE TOOK IT AS NEEDED, WHICH WAS PRETTY MUCH EVERYDAY
     Route: 065
     Dates: start: 201602, end: 201706
  16. ZANTAC [Suspect]
     Active Substance: RANITIDINE HYDROCHLORIDE
     Indication: Helicobacter infection
     Dosage: 150 MG, QD
     Route: 065
     Dates: start: 201201, end: 201712
  17. ZANTAC [Suspect]
     Active Substance: RANITIDINE HYDROCHLORIDE
     Indication: Dyspepsia
     Dosage: 150 MG, TWICE A DAY.
     Route: 065
     Dates: start: 201201, end: 201712
  18. RANITIDINE [Suspect]
     Active Substance: RANITIDINE
     Indication: Dyspepsia
     Dosage: 150 MG, QD, HE TOOK IT AS NEEDED, WHICH WAS PRETTY MUCH EVERYDAY
     Route: 065
     Dates: start: 201602, end: 201706
  19. RANITIDINE [Suspect]
     Active Substance: RANITIDINE
     Indication: Helicobacter infection
     Dosage: 150 MG, QD
     Route: 065
     Dates: start: 201201, end: 201712
  20. RANITIDINE [Suspect]
     Active Substance: RANITIDINE
     Indication: Dyspepsia
     Dosage: 150 MG, TWICE A DAY
     Route: 065
     Dates: start: 201201, end: 201712
  21. RANITIDINE [Suspect]
     Active Substance: RANITIDINE
     Indication: Dyspepsia
     Dosage: 150 MG, QD
     Route: 065
     Dates: start: 201602, end: 201706
  22. RANITIDINE [Suspect]
     Active Substance: RANITIDINE
     Indication: Helicobacter infection
     Dosage: 150 MG, QD
     Route: 065
     Dates: start: 201201, end: 201712
  23. RANITIDINE [Suspect]
     Active Substance: RANITIDINE
     Indication: Dyspepsia
     Dosage: 150 MG, TWICE A DAY
     Route: 065
     Dates: start: 201201, end: 201712

REACTIONS (1)
  - Colorectal cancer [Unknown]
